FAERS Safety Report 6491900-X (Version None)
Quarter: 2009Q4

REPORT INFORMATION
  Report Type: 
  Country: None (occurrence: None)
  Receive Date: 20091125
  Receipt Date: 20090928
  Transmission Date: 20100525
  Serious: Yes (Other)
  Sender: FDA-Public Use
  Company Number: 2009BH012422

PATIENT
  Age: 71 Year
  Sex: Male
  Weight: 88.4514 kg

DRUGS (2)
  1. DIANEAL [Suspect]
     Indication: PERITONEAL DIALYSIS
     Dosage: 8 L ; EVERY DAY ; IP
     Route: 033
     Dates: start: 20081201, end: 20091001
  2. EXTRANEAL [Suspect]
     Indication: PERITONEAL DIALYSIS
     Dosage: 2 L ; EVERY DAY ; IP
     Route: 033
     Dates: start: 20090301, end: 20091001

REACTIONS (1)
  - PERITONITIS BACTERIAL [None]
